FAERS Safety Report 9813654 (Version 5)
Quarter: 2014Q2

REPORT INFORMATION
  Report Type: Spontaneous
  Country: US (occurrence: US)
  Receive Date: 20140113
  Receipt Date: 20140602
  Transmission Date: 20141212
  Serious: Yes (Hospitalization, Other)
  Sender: FDA-Public Use
  Company Number: US-009507513-1401USA003552

PATIENT
  Sex: Male
  Weight: 88.44 kg

DRUGS (13)
  1. JANUVIA [Suspect]
     Indication: TYPE 2 DIABETES MELLITUS
     Dosage: 100 MG, QD
     Route: 048
     Dates: start: 20090714, end: 20110725
  2. METFORMIN [Concomitant]
     Indication: TYPE 2 DIABETES MELLITUS
     Dosage: 500 MG, UNK
  3. METFORMIN [Concomitant]
     Dosage: 1000 MG, QAM
  4. LANTUS [Concomitant]
     Indication: TYPE 2 DIABETES MELLITUS
     Dosage: 25 UNITS HS
  5. INSULIN [Concomitant]
     Indication: TYPE 2 DIABETES MELLITUS
     Dosage: 30 UNITS AT NIGHT
     Route: 058
  6. INSULIN [Concomitant]
     Dosage: SLIDING SCALE
     Route: 058
  7. PRANDIN (DEFLAZACORT) [Concomitant]
     Indication: TYPE 2 DIABETES MELLITUS
  8. HUMALOG [Concomitant]
     Indication: TYPE 2 DIABETES MELLITUS
     Dosage: 10 IU, AC BS}180
     Dates: start: 20110711
  9. TRICOR (ADENOSINE) [Concomitant]
  10. LISINOPRIL [Concomitant]
  11. ACTOS [Concomitant]
  12. NOVOLOG [Concomitant]
     Indication: TYPE 2 DIABETES MELLITUS
     Dosage: SLIDING SCALE
  13. REPAGLINIDE [Concomitant]
     Indication: TYPE 2 DIABETES MELLITUS
     Dosage: 2 MG, QAC

REACTIONS (28)
  - Ductal adenocarcinoma of pancreas [Unknown]
  - Cholecystectomy [Unknown]
  - Pancreaticoduodenectomy [Unknown]
  - Metastases to lymph nodes [Unknown]
  - Metastasis [Unknown]
  - Metastases to lung [Unknown]
  - Enzyme level increased [Unknown]
  - Cholangitis [Unknown]
  - Device occlusion [Unknown]
  - Bile duct stent insertion [Unknown]
  - Umbilical discharge [Unknown]
  - Pyrexia [Unknown]
  - Abdominal pain [Unknown]
  - Depression [Unknown]
  - Panic attack [Unknown]
  - Arthroscopy [Unknown]
  - Cholecystitis chronic [Not Recovered/Not Resolved]
  - Hepatitis cholestatic [Unknown]
  - Radiotherapy [Unknown]
  - Hepatic steatosis [Unknown]
  - Pneumobilia [Unknown]
  - Post procedural inflammation [Recovering/Resolving]
  - Abdominal hernia [Unknown]
  - Pollakiuria [Unknown]
  - Peripancreatic fluid collection [Recovered/Resolved]
  - Pulmonary mass [Unknown]
  - Diastasis recti abdominis [Unknown]
  - Frequent bowel movements [Unknown]
